FAERS Safety Report 7668640-4 (Version None)
Quarter: 2011Q3

REPORT INFORMATION
  Report Type: 
  Country: None (occurrence: None)
  Receive Date: 20110808
  Receipt Date: 20110808
  Transmission Date: 20111222
  Serious: Yes (Disabling)
  Sender: FDA-Public Use
  Company Number: None

PATIENT
  Age: 53 Year
  Sex: Female
  Weight: 113.39 kg

DRUGS (2)
  1. HYZAAR [Suspect]
  2. LOSARTAN POTASSIUM [Suspect]
     Indication: HYPERTENSION
     Dosage: 1 TABLET BY MOUTH
     Route: 048
     Dates: start: 20110718, end: 20110803

REACTIONS (13)
  - PARAESTHESIA ORAL [None]
  - DRUG INEFFECTIVE [None]
  - PRODUCT SUBSTITUTION ISSUE [None]
  - HEADACHE [None]
  - BLOOD PRESSURE INCREASED [None]
  - CHEST PAIN [None]
  - LIP SWELLING [None]
  - OEDEMA PERIPHERAL [None]
  - DIZZINESS [None]
  - DYSPNOEA [None]
  - HYPOAESTHESIA [None]
  - PARAESTHESIA [None]
  - PRODUCT LABEL ON WRONG PRODUCT [None]
